FAERS Safety Report 25524114 (Version 1)
Quarter: 2025Q3

REPORT INFORMATION
  Report Type: Spontaneous
  Country: EU (occurrence: EU)
  Receive Date: 20250707
  Receipt Date: 20250707
  Transmission Date: 20251020
  Serious: Yes (Hospitalization)
  Sender: MYLAN
  Company Number: None

PATIENT
  Age: 33 Year
  Sex: Male

DRUGS (16)
  1. BUPRENORPHINE [Suspect]
     Active Substance: BUPRENORPHINE
     Indication: Product used for unknown indication
  2. BUPRENORPHINE [Suspect]
     Active Substance: BUPRENORPHINE
     Route: 065
  3. BUPRENORPHINE [Suspect]
     Active Substance: BUPRENORPHINE
     Route: 065
  4. BUPRENORPHINE [Suspect]
     Active Substance: BUPRENORPHINE
  5. SKENAN [Suspect]
     Active Substance: MORPHINE SULFATE
     Indication: Product used for unknown indication
  6. SKENAN [Suspect]
     Active Substance: MORPHINE SULFATE
     Route: 065
  7. SKENAN [Suspect]
     Active Substance: MORPHINE SULFATE
     Route: 065
  8. SKENAN [Suspect]
     Active Substance: MORPHINE SULFATE
  9. CANNABIS SATIVA SUBSP. INDICA TOP [Suspect]
     Active Substance: CANNABIS SATIVA SUBSP. INDICA TOP
     Indication: Product used for unknown indication
  10. CANNABIS SATIVA SUBSP. INDICA TOP [Suspect]
     Active Substance: CANNABIS SATIVA SUBSP. INDICA TOP
     Route: 055
  11. CANNABIS SATIVA SUBSP. INDICA TOP [Suspect]
     Active Substance: CANNABIS SATIVA SUBSP. INDICA TOP
     Route: 055
  12. CANNABIS SATIVA SUBSP. INDICA TOP [Suspect]
     Active Substance: CANNABIS SATIVA SUBSP. INDICA TOP
  13. ALCOHOL [Suspect]
     Active Substance: ALCOHOL
     Indication: Product used for unknown indication
  14. ALCOHOL [Suspect]
     Active Substance: ALCOHOL
     Route: 048
  15. ALCOHOL [Suspect]
     Active Substance: ALCOHOL
     Route: 048
  16. ALCOHOL [Suspect]
     Active Substance: ALCOHOL

REACTIONS (4)
  - Bicytopenia [Not Recovered/Not Resolved]
  - Hepatic cytolysis [Not Recovered/Not Resolved]
  - Drug abuse [Not Recovered/Not Resolved]
  - Withdrawal syndrome [Recovered/Resolved]

NARRATIVE: CASE EVENT DATE: 20241211
